FAERS Safety Report 10309048 (Version 2)
Quarter: 2014Q3

REPORT INFORMATION
  Report Type: Spontaneous
  Country: US (occurrence: None)
  Receive Date: 20140714
  Receipt Date: 20140730
  Transmission Date: 20150326
  Serious: Yes (Other)
  Sender: FDA-Public Use
  Company Number: 2014-US-001510

PATIENT
  Age: 50 Year
  Sex: Female
  Weight: 65.8 kg

DRUGS (4)
  1. XANAX [Concomitant]
     Active Substance: ALPRAZOLAM
  2. XYREM [Suspect]
     Active Substance: SODIUM OXYBATE
     Indication: NARCOLEPSY
     Route: 048
     Dates: start: 200905, end: 2009
  3. XYREM [Suspect]
     Active Substance: SODIUM OXYBATE
     Indication: CATAPLEXY
     Route: 048
     Dates: start: 200905, end: 2009
  4. ADDERALL [Concomitant]
     Active Substance: AMPHETAMINE ASPARTATE\AMPHETAMINE SULFATE\DEXTROAMPHETAMINE SACCHARATE\DEXTROAMPHETAMINE SULFATE

REACTIONS (19)
  - Glomerulonephritis [None]
  - Depressed mood [None]
  - Diabetes mellitus [None]
  - Osteoporosis [None]
  - Depression [None]
  - Nephrotic syndrome [None]
  - Cataplexy [None]
  - Drug ineffective [None]
  - No therapeutic response [None]
  - Crohn^s disease [None]
  - Anxiety [None]
  - Stress [None]
  - Confusional state [None]
  - Tremor [None]
  - Weight decreased [None]
  - Diverticulitis [None]
  - Intestinal resection [None]
  - Hernia [None]
  - Appendicitis perforated [None]

NARRATIVE: CASE EVENT DATE: 2014
